FAERS Safety Report 4514110-1 (Version None)
Quarter: 2004Q4

REPORT INFORMATION
  Report Type: 
  Country: None (occurrence: None)
  Receive Date: 20041124
  Receipt Date: 20041116
  Transmission Date: 20050328
  Serious: Yes (Hospitalization)
  Sender: FDA-Public Use
  Company Number: MK200411-0168-1

PATIENT
  Age: 29 Year
  Sex: Female

DRUGS (2)
  1. ANAFRANIL CAP [Suspect]
     Dosage: 150 MG, DAILY
     Dates: start: 20031217, end: 20040122
  2. TAXILAN [Suspect]
     Dosage: 350 MG, DAILY
     Dates: start: 20031204, end: 20040207

REACTIONS (5)
  - ALANINE AMINOTRANSFERASE INCREASED [None]
  - ASPARTATE AMINOTRANSFERASE INCREASED [None]
  - CHILLS [None]
  - DRUG INTERACTION POTENTIATION [None]
  - TREMOR [None]
